FAERS Safety Report 5070295-2 (Version None)
Quarter: 2006Q3

REPORT INFORMATION
  Report Type: 
  Country: None (occurrence: None)
  Receive Date: 20060714
  Receipt Date: 20060412
  Transmission Date: 20061208
  Serious: No
  Sender: FDA-Public Use
  Company Number: 2006SP001662

PATIENT
  Age: 47 Year
  Sex: Female

DRUGS (8)
  1. LUNESTA [Suspect]
     Indication: INSOMNIA
     Dosage: 2 MG;HS;ORAL
     Route: 048
     Dates: start: 20060404
  2. WELLBUTRIN [Concomitant]
  3. WELLBUTRIN SR [Concomitant]
  4. AMLODIPINE [Concomitant]
  5. VALSARTAN [Concomitant]
  6. IRON [Concomitant]
  7. ASPIRIN [Concomitant]
  8. XANAX [Concomitant]

REACTIONS (2)
  - ANXIETY [None]
  - DEPRESSION [None]
